FAERS Safety Report 5667819-0 (Version None)
Quarter: 2008Q1

REPORT INFORMATION
  Report Type: 
  Country: None (occurrence: None)
  Receive Date: 20080315
  Receipt Date: 20080205
  Transmission Date: 20080703
  Serious: No
  Sender: FDA-Public Use
  Company Number: US-ABBOTT-08P-163-0437084-00

PATIENT
  Sex: Female
  Weight: 54.934 kg

DRUGS (7)
  1. HUMIRA [Suspect]
     Indication: JUVENILE ARTHRITIS
     Route: 058
     Dates: start: 20080117, end: 20080128
  2. HUMIRA [Suspect]
     Route: 058
     Dates: start: 20080205
  3. METHOTREXATE [Concomitant]
     Indication: JUVENILE ARTHRITIS
     Route: 048
     Dates: start: 20030101
  4. FOLIC ACID [Concomitant]
     Indication: JUVENILE ARTHRITIS
     Route: 048
     Dates: start: 19990101
  5. RELAFIN [Concomitant]
     Indication: JUVENILE ARTHRITIS
     Route: 048
     Dates: start: 20080101
  6. PRED FORTE EYE GTTS [Concomitant]
     Indication: JUVENILE ARTHRITIS
     Dates: start: 20030101
  7. BROMFENAC SODIUM [Concomitant]
     Indication: JUVENILE ARTHRITIS
     Dates: start: 20080123

REACTIONS (1)
  - SINUSITIS [None]
